FAERS Safety Report 7682508-9 (Version None)
Quarter: 2011Q3

REPORT INFORMATION
  Report Type: 
  Country: None (occurrence: None)
  Receive Date: 20110815
  Receipt Date: 20110803
  Transmission Date: 20111222
  Serious: Yes (Other)
  Sender: FDA-Public Use
  Company Number: PHFR2011GB04630

PATIENT
  Sex: Female

DRUGS (4)
  1. TEGRETOL [Suspect]
     Dosage: 100 MG, QD
     Route: 065
  2. VITAMIN B-12 [Concomitant]
     Route: 065
  3. TEGRETOL [Suspect]
     Indication: NEURALGIA
     Dosage: 200 MG, QD
     Route: 065
  4. ACETAMINOPHEN AND CODEINE PHOSPHATE [Concomitant]
     Route: 065

REACTIONS (2)
  - EYE SWELLING [None]
  - RASH GENERALISED [None]
